FAERS Safety Report 8159272-2 (Version None)
Quarter: 2012Q1

REPORT INFORMATION
  Report Type: 
  Country: None (occurrence: None)
  Receive Date: 20120217
  Receipt Date: 20120206
  Transmission Date: 20120608
  Serious: Yes (Hospitalization)
  Sender: FDA-Public Use
  Company Number: 2012P1004351

PATIENT
  Age: 62 Year
  Sex: Female

DRUGS (2)
  1. CEFMETAZOLE (NO PREF. NAME) [Suspect]
     Indication: PNEUMONIA ASPIRATION
     Dosage: 2 GM;QD
  2. AMPICILLIN [Suspect]
     Indication: PNEUMONIA ASPIRATION
     Dosage: QD

REACTIONS (4)
  - INTERNATIONAL NORMALISED RATIO INCREASED [None]
  - CARCINOEMBRYONIC ANTIGEN INCREASED [None]
  - PROTEIN INDUCED BY VITAMIN K ABSENCE OR ANTAGONIST II INCREASED [None]
  - VITAMIN K DECREASED [None]
